FAERS Safety Report 19110639 (Version 1)
Quarter: 2021Q2

REPORT INFORMATION
  Report Type: Spontaneous
  Country: CN (occurrence: CN)
  Receive Date: 20210408
  Receipt Date: 20210408
  Transmission Date: 20210717
  Serious: Yes (Hospitalization, Disabling, Other)
  Sender: FDA-Public Use
  Company Number: CN-BAXTER-2021BAX006650

PATIENT
  Age: 48 Year
  Sex: Female
  Weight: 60 kg

DRUGS (9)
  1. DOXORUBICIN HYDROCHLORIDE LIPOSOME [Suspect]
     Active Substance: DOXORUBICIN HYDROCHLORIDE
     Dosage: THIRD CHEMOTHERAPY
     Route: 041
     Dates: start: 20201026, end: 20201026
  2. DOXORUBICIN HYDROCHLORIDE LIPOSOME [Suspect]
     Active Substance: DOXORUBICIN HYDROCHLORIDE
     Indication: METASTASES TO LYMPH NODES
     Dosage: SECOND CHEMOTHERAPY
     Route: 041
     Dates: start: 20201007, end: 20201007
  3. ENDOXAN [Suspect]
     Active Substance: CYCLOPHOSPHAMIDE
     Indication: METASTASES TO LYMPH NODES
     Dosage: SECOND CHEMOTHERAPY
     Route: 041
     Dates: start: 20201007, end: 20201007
  4. ENDOXAN [Suspect]
     Active Substance: CYCLOPHOSPHAMIDE
     Dosage: THIRD CHEMOTHERAPY
     Route: 041
     Dates: start: 20201026, end: 20201026
  5. ENDOXAN [Suspect]
     Active Substance: CYCLOPHOSPHAMIDE
     Indication: INVASIVE BREAST CARCINOMA
     Dosage: FIRST CHEMOTHERAPY
     Route: 041
     Dates: start: 20200914, end: 20200914
  6. ENDOXAN [Suspect]
     Active Substance: CYCLOPHOSPHAMIDE
     Dosage: FOURTH CHEMOTHERAPY
     Route: 041
     Dates: start: 20201116, end: 20201116
  7. DOXORUBICIN HYDROCHLORIDE LIPOSOME [Suspect]
     Active Substance: DOXORUBICIN HYDROCHLORIDE
     Indication: INVASIVE BREAST CARCINOMA
     Dosage: FIRST CHEMOTHERAPY
     Route: 041
     Dates: start: 20200914, end: 20200914
  8. DOXORUBICIN HYDROCHLORIDE LIPOSOME [Suspect]
     Active Substance: DOXORUBICIN HYDROCHLORIDE
     Dosage: FOURTH CHEMOTHERAPY
     Route: 041
     Dates: start: 20201116, end: 20201116
  9. BAISAINUO [Concomitant]
     Indication: PRODUCT USED FOR UNKNOWN INDICATION
     Dosage: DOSAGE FORM: TABLETS
     Route: 065

REACTIONS (5)
  - Respiratory failure [Unknown]
  - Circulatory collapse [Unknown]
  - Acute hepatic failure [Recovering/Resolving]
  - Gastrointestinal haemorrhage [Unknown]
  - Acute hepatitis B [Unknown]

NARRATIVE: CASE EVENT DATE: 202012
